FAERS Safety Report 4273121-4 (Version None)
Quarter: 2004Q1

REPORT INFORMATION
  Report Type: 
  Country: None (occurrence: None)
  Receive Date: 20040116
  Receipt Date: 20040113
  Transmission Date: 20041129
  Serious: No
  Sender: FDA-Public Use
  Company Number: US-GLAXOSMITHKLINE-A0492888A

PATIENT
  Age: 56 Year
  Sex: Female

DRUGS (6)
  1. WELLBUTRIN [Suspect]
     Indication: WEIGHT CONTROL
     Dosage: 150MG THREE TIMES PER DAY
     Route: 048
     Dates: start: 20031208
  2. GLUCOPHAGE [Concomitant]
  3. SPIRONOLACTONE [Concomitant]
  4. ZELNORM [Concomitant]
  5. AXID [Concomitant]
  6. ALCON [Concomitant]

REACTIONS (4)
  - DIZZINESS [None]
  - MEDICATION ERROR [None]
  - NAUSEA [None]
  - OVERDOSE [None]
